FAERS Safety Report 6047993-7 (Version None)
Quarter: 2009Q1

REPORT INFORMATION
  Report Type: 
  Country: None (occurrence: None)
  Receive Date: 20090123
  Receipt Date: 20090115
  Transmission Date: 20090719
  Serious: Yes (Other)
  Sender: FDA-Public Use
  Company Number: PHHY2009FR01708

PATIENT
  Age: 85 Year
  Sex: Female

DRUGS (1)
  1. EXELON [Suspect]
     Dosage: UNK
     Dates: start: 20080805

REACTIONS (2)
  - ABNORMAL BEHAVIOUR [None]
  - GENERAL PHYSICAL HEALTH DETERIORATION [None]
